FAERS Safety Report 4500113-X (Version None)
Quarter: 2004Q4

REPORT INFORMATION
  Report Type: 
  Country: None (occurrence: None)
  Receive Date: 20041112
  Receipt Date: 20041103
  Transmission Date: 20050328
  Serious: Yes (Other)
  Sender: FDA-Public Use
  Company Number: GB-GLAXOSMITHKLINE-B0350448A

PATIENT
  Age: 53 Year
  Sex: Male

DRUGS (3)
  1. ACYCLOVIR [Suspect]
     Indication: ENCEPHALITIS VIRAL
     Dosage: 750MG PER DAY
     Route: 042
     Dates: start: 20041025, end: 20041026
  2. CEFTRIAXONE SODIUM [Concomitant]
     Indication: ENCEPHALITIS
     Dosage: 2G PER DAY
     Route: 042
     Dates: start: 20041025
  3. ACETAMINOPHEN [Concomitant]
     Indication: ANALGESIC EFFECT
     Dosage: 1G PER DAY
     Route: 048
     Dates: start: 20041025

REACTIONS (3)
  - CONFUSIONAL STATE [None]
  - HALLUCINATION [None]
  - SLEEP DISORDER [None]
